FAERS Safety Report 6212548-8 (Version None)
Quarter: 2009Q2

REPORT INFORMATION
  Report Type: 
  Country: None (occurrence: None)
  Receive Date: 20090603
  Receipt Date: 20090526
  Transmission Date: 20091009
  Serious: No
  Sender: FDA-Public Use
  Company Number: GB-ASTRAZENECA-2009GB00798

PATIENT
  Age: 17407 Day
  Sex: Female
  Weight: 61.9 kg

DRUGS (3)
  1. SEROQUEL XR [Suspect]
     Indication: SCHIZOPHRENIA
     Dosage: 50 MG
     Route: 048
     Dates: start: 20081124, end: 20081205
  2. SEROQUEL XR [Suspect]
     Dosage: TITRATED FROM 200 TO 800 MG (DAILY)
     Route: 048
     Dates: start: 20081205, end: 20090323
  3. MAGNESIUM SULFATE [Concomitant]
     Indication: MEDICAL DIET

REACTIONS (2)
  - NEUTROPENIA [None]
  - THROMBOCYTOPENIA [None]
